FAERS Safety Report 11274354 (Version 3)
Quarter: 2015Q3

REPORT INFORMATION
  Report Type: Spontaneous
  Country: CH (occurrence: AE)
  Receive Date: 20150715
  Receipt Date: 20150903
  Transmission Date: 20151125
  Serious: Yes (Other)
  Sender: FDA-Public Use
  Company Number: CH-LPDUSPRD-20150535

PATIENT
  Age: 36 Year
  Sex: Female
  Weight: 91.8 kg

DRUGS (1)
  1. FERINJECT [Suspect]
     Active Substance: FERRIC CARBOXYMALTOSE
     Dosage: 1000 MG, 1 IN 1 TOTAL
     Route: 041
     Dates: start: 20150531, end: 20150531

REACTIONS (5)
  - Urticaria [Unknown]
  - Pruritus [Unknown]
  - Cough [Unknown]
  - Flushing [Unknown]
  - Rash generalised [Unknown]

NARRATIVE: CASE EVENT DATE: 20150531
